FAERS Safety Report 11056006 (Version 2)
Quarter: 2015Q2

REPORT INFORMATION
  Report Type: Report from Study
  Country: US (occurrence: US)
  Receive Date: 20150422
  Receipt Date: 20150616
  Transmission Date: 20150821
  Serious: Yes (Hospitalization, Other)
  Sender: FDA-Public Use
  Company Number: US-ALEXION-A201501305

PATIENT

DRUGS (1)
  1. SOLIRIS [Suspect]
     Active Substance: ECULIZUMAB
     Indication: HAEMOLYTIC URAEMIC SYNDROME
     Dosage: UNK
     Route: 042
     Dates: start: 20150401

REACTIONS (9)
  - Cardiac disorder [Unknown]
  - Blood creatinine abnormal [Unknown]
  - Oxygen supplementation [Unknown]
  - Respiratory disorder [Unknown]
  - Haematocrit abnormal [Unknown]
  - Fluid overload [Unknown]
  - Blood urea abnormal [Unknown]
  - Haemoglobin abnormal [Unknown]
  - Blood lactate dehydrogenase abnormal [Unknown]
